FAERS Safety Report 11545905 (Version 3)
Quarter: 2015Q4

REPORT INFORMATION
  Report Type: Spontaneous
  Country: IT (occurrence: IT)
  Receive Date: 20150924
  Receipt Date: 20151009
  Transmission Date: 20160304
  Serious: Yes (Death, Other)
  Sender: FDA-Public Use
  Company Number: IT-GLAXOSMITHKLINE-IT2015135847

PATIENT
  Age: 69 Year
  Sex: Male

DRUGS (6)
  1. RANITIDINE HYDROCHLORIDE. [Suspect]
     Active Substance: RANITIDINE HYDROCHLORIDE
     Indication: PREMEDICATION
     Dosage: DOSAGE FORM: UNSPECIFIED
  2. IOPROMIDE [Suspect]
     Active Substance: IOPROMIDE
     Indication: SCAN WITH CONTRAST
     Dosage: UNKNOWN DOSE
  3. RANITIDINE HYDROCHLORIDE. [Suspect]
     Active Substance: RANITIDINE HYDROCHLORIDE
     Dosage: DOSAGE FORM: UNSPECIFIED
  4. IOPROMIDE [Suspect]
     Active Substance: IOPROMIDE
     Dosage: UNKNOWN DOSE
  5. CETIRIZINE HYDROCHLORIDE. [Suspect]
     Active Substance: CETIRIZINE HYDROCHLORIDE
     Indication: PREMEDICATION
     Dosage: UNKNOWN DOSE
  6. CETIRIZINE HYDROCHLORIDE. [Suspect]
     Active Substance: CETIRIZINE HYDROCHLORIDE
     Indication: OFF LABEL USE
     Dosage: UNKNOWN DOSE

REACTIONS (5)
  - Drug ineffective for unapproved indication [Unknown]
  - Product use issue [Fatal]
  - Wrong patient received medication [Unknown]
  - Off label use [Unknown]
  - Anaphylactic shock [Fatal]
